FAERS Safety Report 9764276 (Version 1)
Quarter: 2013Q4

REPORT INFORMATION
  Report Type: Spontaneous
  Country: US (occurrence: US)
  Receive Date: 20131217
  Receipt Date: 20131217
  Transmission Date: 20140711
  Serious: No
  Sender: FDA-Public Use
  Company Number: US-009507513-1312USA003485

PATIENT
  Sex: Female

DRUGS (4)
  1. COSOPT PF [Suspect]
     Indication: OPEN ANGLE GLAUCOMA
     Dosage: UNK
     Route: 047
  2. COSOPT PF [Suspect]
     Indication: INTRAOCULAR PRESSURE TEST ABNORMAL
  3. ZIOPTAN [Concomitant]
  4. ALPHAGAN P [Concomitant]

REACTIONS (4)
  - Frustration [Unknown]
  - Eye injury [Unknown]
  - Eye pain [Unknown]
  - Product container issue [Unknown]
